FAERS Safety Report 8344309-8 (Version None)
Quarter: 2012Q2

REPORT INFORMATION
  Report Type: 
  Country: None (occurrence: None)
  Receive Date: 20120508
  Receipt Date: 20120504
  Transmission Date: 20120825
  Serious: Yes (Life-Threatening, Hospitalization)
  Sender: FDA-Public Use
  Company Number: US-ASTRAZENECA-2012SE26640

PATIENT
  Age: 63 Year
  Sex: Male
  Weight: 68.2 kg

DRUGS (9)
  1. PULMICORT [Suspect]
     Route: 055
     Dates: start: 20120301, end: 20120408
  2. PROAIR HFA [Suspect]
     Indication: CHRONIC OBSTRUCTIVE PULMONARY DISEASE
     Dosage: AS REQUIRED
     Route: 055
     Dates: start: 20120101
  3. ADVAIR DISKUS 100/50 [Concomitant]
     Indication: CHRONIC OBSTRUCTIVE PULMONARY DISEASE
     Dosage: 250/50 MCG TWO TIMES DAILY
     Route: 055
     Dates: start: 20120101, end: 20120228
  4. NORVASC [Concomitant]
  5. STUDY DRUG [Suspect]
     Indication: CHRONIC OBSTRUCTIVE PULMONARY DISEASE
     Route: 055
     Dates: start: 20120327, end: 20120408
  6. PLAVIX [Concomitant]
  7. ASPIRIN [Concomitant]
  8. SIMVASTATIN [Concomitant]
  9. NITROGLYCERIN [Concomitant]

REACTIONS (5)
  - HYPERLIPIDAEMIA [None]
  - HYPERTENSION [None]
  - ANGINA UNSTABLE [None]
  - ACUTE MYOCARDIAL INFARCTION [None]
  - DYSPEPSIA [None]
